FAERS Safety Report 25426249 (Version 2)
Quarter: 2025Q3

REPORT INFORMATION
  Report Type: Spontaneous
  Country: CA (occurrence: CA)
  Receive Date: 20250612
  Receipt Date: 20250703
  Transmission Date: 20251021
  Serious: Yes (Other)
  Sender: LEO PHARM
  Company Number: None

PATIENT
  Age: 72 Year
  Sex: Male

DRUGS (8)
  1. CALCIPOTRIENE [Suspect]
     Active Substance: CALCIPOTRIENE
     Indication: Product used for unknown indication
     Route: 003
  2. MOMETASONE FUROATE [Suspect]
     Active Substance: MOMETASONE FUROATE
     Indication: Erosive pustular dermatosis
     Route: 003
  3. PREDNISONE [Suspect]
     Active Substance: PREDNISONE
     Indication: Erosive pustular dermatosis
  4. ISOTRETINOIN [Suspect]
     Active Substance: ISOTRETINOIN
     Indication: Erosive pustular dermatosis
     Route: 048
  5. COLCHICINE [Suspect]
     Active Substance: COLCHICINE
     Indication: Erosive pustular dermatosis
  6. DAPSONE [Suspect]
     Active Substance: DAPSONE
     Indication: Erosive pustular dermatosis
  7. DOXYCYCLINE [Suspect]
     Active Substance: DOXYCYCLINE
     Indication: Erosive pustular dermatosis
  8. PROTOPIC [Suspect]
     Active Substance: TACROLIMUS
     Indication: Erosive pustular dermatosis
     Route: 003

REACTIONS (2)
  - Basal cell carcinoma [Unknown]
  - Product use in unapproved indication [Unknown]
